FAERS Safety Report 6758351-1 (Version None)
Quarter: 2010Q2

REPORT INFORMATION
  Report Type: 
  Country: None (occurrence: None)
  Receive Date: 20100524
  Receipt Date: 20100405
  Transmission Date: 20101027
  Serious: No
  Sender: FDA-Public Use
  Company Number: 009854

PATIENT
  Sex: Male
  Weight: 28.6 kg

DRUGS (4)
  1. CIMZIA [Suspect]
     Indication: CROHN'S DISEASE
     Dosage: SUBCUTANEOUS
     Route: 058
     Dates: start: 20100305
  2. PREDNISONE [Concomitant]
  3. METHOTREXATE [Concomitant]
  4. XIFAXAN [Concomitant]

REACTIONS (2)
  - DYSPNOEA [None]
  - PAIN IN EXTREMITY [None]
